FAERS Safety Report 6023891-X (Version None)
Quarter: 2008Q4

REPORT INFORMATION
  Report Type: 
  Country: None (occurrence: None)
  Receive Date: 20081230
  Receipt Date: 20081222
  Transmission Date: 20090506
  Serious: Yes (Other)
  Sender: FDA-Public Use
  Company Number: AU-PFIZER INC-2008093933

PATIENT

DRUGS (2)
  1. CADUET [Suspect]
     Indication: HYPERTENSION
     Dosage: 5/40 MG,DAILY
     Route: 048
     Dates: start: 20080530, end: 20080730
  2. CADUET [Suspect]
     Indication: DYSLIPIDAEMIA

REACTIONS (2)
  - CONFUSIONAL STATE [None]
  - FEELING ABNORMAL [None]
